FAERS Safety Report 5201611-6 (Version None)
Quarter: 2006Q4

REPORT INFORMATION
  Report Type: 
  Country: None (occurrence: None)
  Receive Date: 20061006
  Receipt Date: 20060223
  Transmission Date: 20070319
  Serious: Yes (Other)
  Sender: FDA-Public Use
  Company Number: 200610059BWH

PATIENT
  Sex: Male

DRUGS (1)
  1. CIPRO [Suspect]
     Indication: URINARY TRACT INFECTION
     Dates: start: 19940728

REACTIONS (4)
  - HALLUCINATION [None]
  - MALAISE [None]
  - PARANOIA [None]
  - RESTLESSNESS [None]
